FAERS Safety Report 8449831-1 (Version None)
Quarter: 2012Q2

REPORT INFORMATION
  Report Type: 
  Country: None (occurrence: None)
  Receive Date: 20120620
  Receipt Date: 20120607
  Transmission Date: 20120825
  Serious: Yes (Other)
  Sender: FDA-Public Use
  Company Number: US-ELI_LILLY_AND_COMPANY-US201206002707

PATIENT
  Age: 44 Year
  Sex: Female

DRUGS (3)
  1. PROGESTERONE [Concomitant]
     Indication: SLEEP DISORDER
  2. EVAMIST [Concomitant]
     Route: 061
  3. CYMBALTA [Suspect]
     Indication: ANXIETY
     Dosage: 30 MG, UNKNOWN
     Dates: start: 20120401

REACTIONS (4)
  - ORAL PAIN [None]
  - TONGUE NEOPLASM MALIGNANT STAGE UNSPECIFIED [None]
  - GINGIVAL PAIN [None]
  - TOOTHACHE [None]
